FAERS Safety Report 6988249-5 (Version None)
Quarter: 2010Q3

REPORT INFORMATION
  Report Type: 
  Country: None (occurrence: None)
  Receive Date: 20100830
  Receipt Date: 20100510
  Transmission Date: 20110219
  Serious: Yes (Other)
  Sender: FDA-Public Use
  Company Number: 2010033967

PATIENT
  Sex: Male

DRUGS (3)
  1. TOVIAZ [Suspect]
     Dosage: 4 MG, 8 MG
     Dates: start: 20091201, end: 20100202
  2. TOVIAZ [Suspect]
     Dosage: 4 MG, 8 MG
     Dates: start: 20100203
  3. TAMSULOSIN HCL [Concomitant]

REACTIONS (1)
  - URINARY RETENTION [None]
